FAERS Safety Report 9266351 (Version 2)
Quarter: 2013Q2

REPORT INFORMATION
  Report Type: Report from Study
  Country: CA (occurrence: CA)
  Receive Date: 20130502
  Receipt Date: 20130605
  Transmission Date: 20140414
  Serious: Yes (Death, Other)
  Sender: FDA-Public Use
  Company Number: CA-ROCHE-1098529

PATIENT
  Age: 69 Year
  Sex: Male
  Weight: 71 kg

DRUGS (6)
  1. ACTEMRA [Suspect]
     Indication: RHEUMATOID ARTHRITIS
     Route: 042
     Dates: start: 20120210, end: 20120710
  2. PREDNISONE [Concomitant]
  3. DOXYCYCLINE [Concomitant]
  4. FENTANYL [Concomitant]
     Route: 062
  5. METHOTREXATE [Concomitant]
  6. ENBREL [Concomitant]

REACTIONS (3)
  - Disease progression [Fatal]
  - Weight decreased [Unknown]
  - Urinary tract infection [Recovered/Resolved]
